FAERS Safety Report 16441725 (Version 1)
Quarter: 2019Q2

REPORT INFORMATION
  Report Type: Report from Study
  Country: None (occurrence: US)
  Receive Date: 20190617
  Receipt Date: 20190617
  Transmission Date: 20190711
  Serious: No
  Sender: FDA-Public Use
  Company Number: US-US WORLDMEDS, LLC-USW201805-000853

PATIENT
  Age: 79 Year
  Sex: Male
  Weight: 81.61 kg

DRUGS (6)
  1. APOKYN [Suspect]
     Active Substance: APOMORPHINE HYDROCHLORIDE
     Dates: start: 20180531
  2. APOKYN [Suspect]
     Active Substance: APOMORPHINE HYDROCHLORIDE
     Indication: PARKINSON^S DISEASE
     Route: 058
  3. LOSARTAN. [Suspect]
     Active Substance: LOSARTAN
     Indication: HYPERTENSION
  4. APOKYN [Suspect]
     Active Substance: APOMORPHINE HYDROCHLORIDE
     Dates: start: 20180531, end: 201807
  5. METOPROLOL. [Suspect]
     Active Substance: METOPROLOL
     Indication: HYPERTENSION
  6. LEVODOPA [Concomitant]
     Active Substance: LEVODOPA

REACTIONS (5)
  - Feeling abnormal [Recovered/Resolved]
  - Dizziness [Recovered/Resolved]
  - Asthenia [Recovered/Resolved]
  - Somnolence [Recovered/Resolved]
  - Balance disorder [Recovered/Resolved]

NARRATIVE: CASE EVENT DATE: 20180620
